FAERS Safety Report 8607901-9 (Version None)
Quarter: 2012Q3

REPORT INFORMATION
  Report Type: 
  Country: None (occurrence: None)
  Receive Date: 20120821
  Receipt Date: 20110706
  Transmission Date: 20120928
  Serious: No
  Sender: FDA-Public Use
  Company Number: US-MYLANLABS-2011S1013847

PATIENT
  Age: 95 Year
  Sex: Female

DRUGS (8)
  1. NISOLDIPINE [Suspect]
     Indication: HYPERTENSION
     Route: 048
     Dates: start: 20110301, end: 20110318
  2. PREDNISONE [Concomitant]
  3. ZANTAC [Concomitant]
  4. AVAPRO [Concomitant]
  5. ISOSORBIDE [Concomitant]
  6. NAMENDA [Concomitant]
  7. CHOLEST-OFF [Concomitant]
  8. ARICEPT [Concomitant]

REACTIONS (4)
  - FURUNCLE [None]
  - RASH [None]
  - THROAT TIGHTNESS [None]
  - LIP SWELLING [None]
